FAERS Safety Report 6386794-7 (Version None)
Quarter: 2009Q4

REPORT INFORMATION
  Report Type: 
  Country: None (occurrence: None)
  Receive Date: 20091002
  Receipt Date: 20090929
  Transmission Date: 20100525
  Serious: Yes (Hospitalization)
  Sender: FDA-Public Use
  Company Number: B0581609A

PATIENT
  Sex: Female
  Weight: 88 kg

DRUGS (7)
  1. VENTOLIN [Suspect]
     Indication: ASTHMA
     Dosage: 5MG AS REQUIRED
     Route: 055
     Dates: start: 20090601, end: 20090601
  2. SERETIDE [Suspect]
     Indication: ASTHMA
     Dosage: 1PUFF TWICE PER DAY
     Route: 055
  3. UNKNOWN DRUG [Concomitant]
  4. DOXAZOSIN MESYLATE [Concomitant]
  5. SPIRIVA [Concomitant]
  6. SUMATRIPTAN SUCCINATE [Concomitant]
     Dosage: 100MG AS REQUIRED
  7. LOSEC [Concomitant]

REACTIONS (2)
  - PRODUCT QUALITY ISSUE [None]
  - TREMOR [None]
